FAERS Safety Report 6708952-1 (Version None)
Quarter: 2010Q2

REPORT INFORMATION
  Report Type: 
  Country: None (occurrence: None)
  Receive Date: 20100504
  Receipt Date: 20100420
  Transmission Date: 20101027
  Serious: Yes (Hospitalization, Other)
  Sender: FDA-Public Use
  Company Number: PHHY2010US17762

PATIENT
  Sex: Female
  Weight: 71.98 kg

DRUGS (15)
  1. EXJADE [Suspect]
     Indication: IRON METABOLISM DISORDER
     Dosage: 1375 MG DAILY
     Route: 048
     Dates: start: 20100226
  2. LASIX [Concomitant]
  3. FOLIC ACID [Concomitant]
  4. NIFEDICAL [Concomitant]
  5. MAGNESIUM [Concomitant]
  6. DILAUDID [Concomitant]
  7. METOPROLOL [Concomitant]
  8. ESTRADIOL [Concomitant]
  9. CYANOCOBALAMIN [Concomitant]
  10. POTASSIUM [Concomitant]
  11. CYCLOSPORINE [Concomitant]
  12. SPIRIVA [Concomitant]
  13. SYMBICORT [Concomitant]
  14. PROCHLORPERAZINE [Concomitant]
  15. TOPRAL [Concomitant]

REACTIONS (7)
  - ABDOMINAL DISTENSION [None]
  - ABDOMINAL PAIN [None]
  - CHOLECYSTECTOMY [None]
  - CHOLELITHIASIS [None]
  - CONDITION AGGRAVATED [None]
  - FATIGUE [None]
  - NAUSEA [None]
